FAERS Safety Report 5761578-9 (Version None)
Quarter: 2008Q2

REPORT INFORMATION
  Report Type: 
  Country: None (occurrence: None)
  Receive Date: 20080606
  Receipt Date: 20080527
  Transmission Date: 20081010
  Serious: Yes (Other)
  Sender: FDA-Public Use
  Company Number: BR-PFIZER INC-2006086196

PATIENT
  Sex: Female

DRUGS (1)
  1. FARLUTAL [Suspect]
     Indication: AMENORRHOEA
     Route: 048
     Dates: start: 20060601, end: 20060701

REACTIONS (3)
  - ABDOMINAL PAIN [None]
  - ABORTION SPONTANEOUS [None]
  - DRUG INEFFECTIVE [None]
